FAERS Safety Report 8606178-8 (Version None)
Quarter: 2012Q3

REPORT INFORMATION
  Report Type: 
  Country: None (occurrence: None)
  Receive Date: 20120820
  Receipt Date: 20120809
  Transmission Date: 20120928
  Serious: Yes (Hospitalization)
  Sender: FDA-Public Use
  Company Number: IT-ASTRAZENECA-2012SE56601

PATIENT
  Age: 22826 Day
  Sex: Male

DRUGS (7)
  1. SALICYLIC ACID ACETYL [Suspect]
     Indication: CARDIOVASCULAR EVENT PROPHYLAXIS
     Route: 048
     Dates: start: 20080101
  2. ATENOLOLO (ATENOLOL) [Concomitant]
     Indication: HYPERTENSION
     Route: 048
  3. NITROGLICERINA(NITROGLYCERINE) [Concomitant]
  4. KEPPRA [Concomitant]
     Indication: EPILEPSY
     Route: 048
  5. ATORVASTATIN [Concomitant]
     Indication: DYSLIPIDAEMIA
     Route: 048
  6. RAMIPRIL [Suspect]
     Indication: HYPERTENSION
     Route: 048
  7. BRILINTA [Suspect]
     Indication: THROMBOSIS PROPHYLAXIS
     Route: 048
     Dates: start: 20120601

REACTIONS (2)
  - GASTRIC ULCER HAEMORRHAGE [None]
  - ANAEMIA [None]
